FAERS Safety Report 10208050 (Version 1)
Quarter: 2014Q2

REPORT INFORMATION
  Report Type: Spontaneous
  Country: US (occurrence: None)
  Receive Date: 20140528
  Receipt Date: 20140528
  Transmission Date: 20141212
  Serious: Yes (Hospitalization)
  Sender: FDA-Public Use
  Company Number: None

PATIENT
  Age: 20 Year
  Sex: Female
  Weight: 51.4 kg

DRUGS (2)
  1. GAMUNEX [Suspect]
     Indication: AUTOIMMUNE DISORDER
     Dosage: GAMUNEX 50GM EVERY 2 WEEKS IV/PAC
     Route: 042
     Dates: start: 20140511, end: 20140512
  2. SODIUM CHLORIDE  0.9% [Suspect]
     Dosage: SODIUM CHLORIDE 0.9% (NS) 1 LITER AFTER IVIG EVERY 2 WK IV/PAC
     Route: 042

REACTIONS (7)
  - Respiratory distress [None]
  - Chest pain [None]
  - Vomiting [None]
  - Air embolism [None]
  - Wrong technique in drug usage process [None]
  - Infusion related reaction [None]
  - Speech disorder [None]
